FAERS Safety Report 15608876 (Version 1)
Quarter: 2018Q4

REPORT INFORMATION
  Report Type: Spontaneous
  Country: CA (occurrence: CA)
  Receive Date: 20181112
  Receipt Date: 20181112
  Transmission Date: 20190205
  Serious: Yes (Hospitalization, Other)
  Sender: FDA-Public Use
  Company Number: CA-SA-2018SA310689

PATIENT
  Age: 45 Year
  Sex: Female

DRUGS (1)
  1. CHLOROQUINE. [Suspect]
     Active Substance: CHLOROQUINE
     Indication: PALINDROMIC RHEUMATISM
     Dosage: 250 MG, QD
     Route: 048

REACTIONS (15)
  - Ventricular hypertrophy [Recovering/Resolving]
  - Oedema peripheral [Recovering/Resolving]
  - Bradycardia [Recovering/Resolving]
  - Dilatation atrial [Recovering/Resolving]
  - Cardiac failure [Recovering/Resolving]
  - Weight increased [Recovering/Resolving]
  - Orthopnoea [Recovering/Resolving]
  - Mitral valve incompetence [Recovering/Resolving]
  - Cardiomyopathy [Recovering/Resolving]
  - Fatigue [Recovering/Resolving]
  - Acute kidney injury [Unknown]
  - Bifascicular block [Recovering/Resolving]
  - Kidney congestion [Recovering/Resolving]
  - Tricuspid valve incompetence [Recovering/Resolving]
  - Dyspnoea [Recovering/Resolving]
